FAERS Safety Report 13460289 (Version 5)
Quarter: 2018Q1

REPORT INFORMATION
  Report Type: Report from Study
  Country: JP (occurrence: JP)
  Receive Date: 20170420
  Receipt Date: 20180213
  Transmission Date: 20180508
  Serious: Yes (Hospitalization)
  Sender: FDA-Public Use
  Company Number: JP-ASTRAZENECA-2017SE40208

PATIENT
  Age: 77 Year
  Sex: Female
  Weight: 60 kg

DRUGS (5)
  1. TAGRISSO [Suspect]
     Active Substance: OSIMERTINIB
     Indication: NON-SMALL CELL LUNG CANCER
     Route: 048
     Dates: start: 20170214, end: 20170417
  2. TAGRISSO [Suspect]
     Active Substance: OSIMERTINIB
     Indication: NON-SMALL CELL LUNG CANCER
     Route: 048
     Dates: start: 20170125, end: 20170202
  3. TAGRISSO [Suspect]
     Active Substance: OSIMERTINIB
     Indication: NON-SMALL CELL LUNG CANCER
     Dosage: 40 MG ONCE AND 80 MG ONCE ON ALTERNATE DAYS
     Route: 048
     Dates: start: 20170418, end: 20170530
  4. TAGRISSO [Suspect]
     Active Substance: OSIMERTINIB
     Indication: NON-SMALL CELL LUNG CANCER
     Route: 048
     Dates: start: 20170601, end: 20171217
  5. TAGRISSO [Suspect]
     Active Substance: OSIMERTINIB
     Indication: NON-SMALL CELL LUNG CANCER
     Dosage: 40 MG ONCE AND 80 MG ONCE ON ALTERNATE DAYS
     Route: 048
     Dates: start: 20170419, end: 20170531

REACTIONS (2)
  - Diarrhoea [Recovered/Resolved]
  - Liver disorder [Recovered/Resolved]

NARRATIVE: CASE EVENT DATE: 20170127
